FAERS Safety Report 4658147-0 (Version None)
Quarter: 2005Q2

REPORT INFORMATION
  Report Type: 
  Country: None (occurrence: None)
  Receive Date: 20050509
  Receipt Date: 20050427
  Transmission Date: 20051028
  Serious: Yes (Hospitalization, Other)
  Sender: FDA-Public Use
  Company Number: 2005061460

PATIENT
  Sex: Female
  Weight: 68.0396 kg

DRUGS (10)
  1. BEXTRA [Suspect]
     Indication: PAIN
     Dosage: 1 IN 1 D, ORAL
     Route: 048
     Dates: end: 20040101
  2. CELEBREX [Suspect]
     Indication: ILL-DEFINED DISORDER
     Dosage: ORAL
     Route: 048
  3. CONJUGATED ESTROGENS [Concomitant]
  4. HYDROXYCHLOROQUINE SULFATE [Concomitant]
  5. ATORVASTATIN CALCIUM [Concomitant]
  6. EZETIMIBE (EZETIMIBE) [Concomitant]
  7. TRIOBE (CYANOCOBALAMIN, FOLIC ACID, PYRIDOXINE) [Concomitant]
  8. FUROSEMIDE [Concomitant]
  9. LISINOPRIL [Concomitant]
  10. AMITRIPTYLINE HCL [Concomitant]

REACTIONS (3)
  - AORTIC VALVE DISEASE [None]
  - DRUG INEFFECTIVE [None]
  - PHARMACEUTICAL PRODUCT COMPLAINT [None]
